FAERS Safety Report 7690184-4 (Version None)
Quarter: 2011Q3

REPORT INFORMATION
  Report Type: 
  Country: None (occurrence: None)
  Receive Date: 20110811
  Receipt Date: 20110805
  Transmission Date: 20111222
  Serious: Yes (Life-Threatening, Disabling, Other)
  Sender: FDA-Public Use
  Company Number: 2011SP023955

PATIENT
  Age: 20 Year
  Sex: Female
  Weight: 86.1834 kg

DRUGS (10)
  1. COLACE [Concomitant]
  2. IBUPROFEN [Concomitant]
  3. WITCH HAZEL [Concomitant]
  4. HYDROCORTISONE [Concomitant]
  5. ACETAMINOPHEN [Concomitant]
  6. LEBETALOL [Concomitant]
  7. BENXOCAIN [Concomitant]
  8. IMPLANON [Suspect]
     Indication: CONTRACEPTION
     Dosage: 1 DF; SBDE
     Route: 059
     Dates: start: 20110516, end: 20110518
  9. PARENATAL [Concomitant]
  10. FERROUS SULFATE TAB [Concomitant]

REACTIONS (2)
  - DRUG HYPERSENSITIVITY [None]
  - DEVICE DISLOCATION [None]
